FAERS Safety Report 19699362 (Version 1)
Quarter: 2021Q3

REPORT INFORMATION
  Report Type: Spontaneous
  Country: FR (occurrence: FR)
  Receive Date: 20210813
  Receipt Date: 20210813
  Transmission Date: 20211014
  Serious: Yes (Hospitalization)
  Sender: FDA-Public Use
  Company Number: FR-ORGANON-O2108FRA000266

PATIENT
  Age: 81 Year
  Sex: Female

DRUGS (4)
  1. EZETROL [Suspect]
     Active Substance: EZETIMIBE
     Indication: HYPERCHOLESTEROLAEMIA
     Dosage: 10 MILLIGRAM, QD
     Route: 048
     Dates: end: 20210613
  2. DAKTARIN [MICONAZOLE NITRATE] [Suspect]
     Active Substance: MICONAZOLE NITRATE
     Indication: ORAL CANDIDIASIS
     Dosage: UNK
     Route: 048
     Dates: start: 20210602, end: 202106
  3. FUNGIZONE [Suspect]
     Active Substance: AMPHOTERICIN B
     Indication: ORAL CANDIDIASIS
     Dosage: 5 ML 3 TIMES/DAY (3 FOIS/J)
     Route: 048
     Dates: start: 20210505, end: 20210512
  4. FUNGIZONE [Suspect]
     Active Substance: AMPHOTERICIN B
     Dosage: 5 ML X 3/DAY (3/J)
     Route: 048
     Dates: start: 20210525, end: 20210602

REACTIONS (1)
  - Hepatitis cholestatic [Recovering/Resolving]

NARRATIVE: CASE EVENT DATE: 20210612
